FAERS Safety Report 12967914 (Version 1)
Quarter: 2016Q4

REPORT INFORMATION
  Report Type: Spontaneous
  Country: US (occurrence: US)
  Receive Date: 20161123
  Receipt Date: 20161123
  Transmission Date: 20170207
  Serious: No
  Sender: FDA-Public Use
  Company Number: US-PFIZER INC-2016544796

PATIENT

DRUGS (1)
  1. CHANTIX [Suspect]
     Active Substance: VARENICLINE TARTRATE
     Dosage: UNK
     Dates: start: 20161115

REACTIONS (5)
  - Pharyngeal oedema [Unknown]
  - Tremor [Unknown]
  - Dysgeusia [Unknown]
  - Nausea [Unknown]
  - Eating disorder [Unknown]

NARRATIVE: CASE EVENT DATE: 20161119
